FAERS Safety Report 7299042-0 (Version None)
Quarter: 2011Q1

REPORT INFORMATION
  Report Type: 
  Country: None (occurrence: None)
  Receive Date: 20110217
  Receipt Date: 20110209
  Transmission Date: 20110831
  Serious: Yes (Life-Threatening, Hospitalization)
  Sender: FDA-Public Use
  Company Number: DE-BAXTER-2010BH027528

PATIENT
  Age: 59 Year
  Sex: Male
  Weight: 73 kg

DRUGS (21)
  1. ASPIRIN [Concomitant]
  2. ILOMEDIN [Concomitant]
     Route: 055
     Dates: start: 20100803
  3. BOSENTAN [Concomitant]
  4. PANTOPRAZOLE [Concomitant]
  5. PENTOXIFYLLINE [Concomitant]
  6. ACETYLCYSTEINE [Concomitant]
  7. CIPRO [Concomitant]
  8. DISALUNIL [Concomitant]
  9. CALCIUM [Concomitant]
  10. NORVASC [Concomitant]
  11. GAMMAGARD LIQUID [Suspect]
     Indication: PLASMAPHERESIS
     Route: 042
     Dates: start: 20101022, end: 20101023
  12. LIQUEMINE [Concomitant]
  13. CLINDAMYCIN HYDROCHLORIDE [Concomitant]
  14. RIOPAN [Concomitant]
  15. ZOPICLONE [Concomitant]
  16. COLECALCIFEROL [Concomitant]
  17. CYCLOPHOSPHAMIDE [Concomitant]
  18. HEPARIN [Concomitant]
  19. DECORTIN-H [Concomitant]
  20. SILDENAFIL [Concomitant]
  21. KALINOR [Concomitant]

REACTIONS (1)
  - RESPIRATORY FAILURE [None]
